FAERS Safety Report 16721886 (Version 2)
Quarter: 2019Q3

REPORT INFORMATION
  Report Type: Report from Study
  Country: KR (occurrence: KR)
  Receive Date: 20190820
  Receipt Date: 20190828
  Transmission Date: 20191005
  Serious: Yes (Hospitalization)
  Sender: FDA-Public Use
  Company Number: KR-DSJP-DSJ-2019-131429AA

PATIENT

DRUGS (2)
  1. OLMESARTAN AMLODIPINE HYDROCHLOROTHIAZIDE [Suspect]
     Active Substance: AMLODIPINE\HYDROCHLOROTHIAZIDE\OLMESARTAN
     Indication: ESSENTIAL HYPERTENSION
     Dosage: 1 DF, QD
     Route: 048
     Dates: start: 20181119
  2. ELIQUIS [Concomitant]
     Active Substance: APIXABAN
     Indication: SUPRAVENTRICULAR EXTRASYSTOLES
     Dosage: 5 MG, BID
     Route: 048
     Dates: start: 20160905

REACTIONS (2)
  - Acute kidney injury [Recovered/Resolved]
  - Ileus [Recovered/Resolved]

NARRATIVE: CASE EVENT DATE: 20190206
